FAERS Safety Report 6128859-0 (Version None)
Quarter: 2009Q1

REPORT INFORMATION
  Report Type: 
  Country: None (occurrence: None)
  Receive Date: 20090320
  Receipt Date: 20090305
  Transmission Date: 20090719
  Serious: Yes (Other)
  Sender: FDA-Public Use
  Company Number: BAI_00008_2009

PATIENT
  Age: 52 Year
  Sex: Male

DRUGS (2)
  1. IPRATROPIUM BROMIDE [Suspect]
     Indication: DRUG USE FOR UNKNOWN INDICATION
     Dosage: (DF RESPIRATORY (INHALATION))
     Route: 055
  2. ALBUTEROL [Suspect]
     Indication: DRUG USE FOR UNKNOWN INDICATION
     Dosage: (DF RESPIRATORY (INHALATION))
     Route: 055

REACTIONS (6)
  - ABDOMINAL DISTENSION [None]
  - GASTROINTESTINAL SOUNDS ABNORMAL [None]
  - POST PROCEDURAL BILE LEAK [None]
  - PUPIL FIXED [None]
  - PUPILS UNEQUAL [None]
  - RESPIRATORY FAILURE [None]
